FAERS Safety Report 9602498 (Version 3)
Quarter: 2013Q4

REPORT INFORMATION
  Report Type: Spontaneous
  Country: JP (occurrence: JP)
  Receive Date: 20131007
  Receipt Date: 20131111
  Transmission Date: 20140711
  Serious: Yes (Other)
  Sender: FDA-Public Use
  Company Number: JP-SA-2013SA096381

PATIENT
  Age: 26 Year
  Sex: Female

DRUGS (3)
  1. DELLEGRA [Suspect]
     Indication: RHINITIS ALLERGIC
     Route: 048
     Dates: start: 20130922, end: 20130923
  2. ERIZAS [Concomitant]
     Indication: RHINITIS ALLERGIC
     Route: 045
     Dates: start: 20130906
  3. ALLELOCK [Concomitant]
     Route: 048
     Dates: start: 20130906, end: 20130922

REACTIONS (2)
  - Loss of consciousness [Recovered/Resolved]
  - Insomnia [Recovered/Resolved]
